FAERS Safety Report 10723888 (Version 1)
Quarter: 2015Q1

REPORT INFORMATION
  Report Type: Spontaneous
  Country: US (occurrence: US)
  Receive Date: 20150120
  Receipt Date: 20150120
  Transmission Date: 20150721
  Serious: Yes (Other)
  Sender: FDA-Public Use
  Company Number: US-PURDUE-USA-2015-0120421

PATIENT
  Sex: Male

DRUGS (4)
  1. BUTRANS [Suspect]
     Active Substance: BUPRENORPHINE
     Indication: PAIN
     Dosage: 15 MCG/HR, WEEKLY
     Route: 062
  2. GABAPENTIN. [Concomitant]
     Active Substance: GABAPENTIN
     Indication: PRODUCT USED FOR UNKNOWN INDICATION
     Dosage: 300 MG, DAILY
     Route: 048
  3. BUTRANS [Suspect]
     Active Substance: BUPRENORPHINE
     Dosage: 10 MCG/HR, WEEKLY
     Route: 062
     Dates: start: 201412
  4. DEPAKOTE [Concomitant]
     Active Substance: DIVALPROEX SODIUM
     Indication: BIPOLAR DISORDER
     Dosage: 1500 MG, DAILY
     Route: 048

REACTIONS (4)
  - Inadequate analgesia [Unknown]
  - Intervertebral disc degeneration [Unknown]
  - Product adhesion issue [Unknown]
  - Breakthrough pain [Unknown]
